FAERS Safety Report 19483410 (Version 2)
Quarter: 2022Q1

REPORT INFORMATION
  Report Type: Other
  Country: RO (occurrence: None)
  Receive Date: 20210701
  Receipt Date: 20220314
  Transmission Date: 20220423
  Serious: Yes (Other)
  Sender: FDA-Public Use
  Company Number: RO-ROCHE-2856582

PATIENT
  Sex: Female
  Weight: 40 kg

DRUGS (2)
  1. TOCILIZUMAB [Suspect]
     Active Substance: TOCILIZUMAB
     Indication: Rheumatoid arthritis
     Dosage: SUBCUTANEOUS, IN THE LEG
     Route: 058
     Dates: end: 2019
  2. TOCILIZUMAB [Suspect]
     Active Substance: TOCILIZUMAB
     Dosage: 0.9 ML SYRINGE
     Route: 058
     Dates: start: 201902, end: 201904

REACTIONS (2)
  - Lymphadenopathy [Unknown]
  - Off label use [Unknown]
